FAERS Safety Report 21107437 (Version 1)
Quarter: 2022Q3

REPORT INFORMATION
  Report Type: Spontaneous
  Country: US (occurrence: US)
  Receive Date: 20220720
  Receipt Date: 20220720
  Transmission Date: 20221027
  Serious: Yes (Life-Threatening, Hospitalization, Other)
  Sender: FDA-Public Use
  Company Number: US-FreseniusKabi-FK202210166

PATIENT
  Age: 78 Year
  Sex: Female
  Weight: 148.6 kg

DRUGS (2)
  1. ZOLEDRONIC ACID [Suspect]
     Active Substance: ZOLEDRONIC ACID
     Indication: Osteoporosis
     Dosage: INTRAVENOUS (IV), DOSE: 5 MG, FREQUENCY: ONCE
     Route: 042
     Dates: start: 20220328, end: 20220328
  2. MEDROL [Suspect]
     Active Substance: METHYLPREDNISOLONE
     Indication: Chest pain

REACTIONS (1)
  - Myocardial infarction [Recovered/Resolved]

NARRATIVE: CASE EVENT DATE: 20220328
